FAERS Safety Report 16023744 (Version 2)
Quarter: 2020Q3

REPORT INFORMATION
  Report Type: Report from Study
  Country: FR (occurrence: FR)
  Receive Date: 20190301
  Receipt Date: 20190312
  Transmission Date: 20201105
  Serious: Yes (Other)
  Sender: FDA-Public Use
  Company Number: FR-ROCHE-2268097

PATIENT
  Age: 49 Year
  Sex: Female
  Weight: 62 kg

DRUGS (3)
  1. BROMAZEPAM [Concomitant]
     Active Substance: BROMAZEPAM
     Indication: INSOMNIA
     Dosage: DOSE: 0.5 (UNIT NOT REPORTED).
     Route: 048
  2. ATEZOLIZUMAB. [Suspect]
     Active Substance: ATEZOLIZUMAB
     Indication: NON-SMALL CELL LUNG CANCER
     Dosage: ON 16/JAN/2019, RECEIVED MOST RECENT DOSE OF ATEZOLIZUMAB 1200MG
     Route: 042
     Dates: start: 20181227
  3. TIRAGOLUMAB. [Suspect]
     Active Substance: TIRAGOLUMAB
     Indication: NON-SMALL CELL LUNG CANCER
     Dosage: DATE OF MOST RECENT DOSE OF MTIG7192A OR PLACEBO PRIOR TO ADVERSE EVENT: 16/JAN/2019.
     Route: 042
     Dates: start: 20181227

REACTIONS (1)
  - Peripheral paralysis [Unknown]

NARRATIVE: CASE EVENT DATE: 20190213
